FAERS Safety Report 4492986-4 (Version None)
Quarter: 2004Q4

REPORT INFORMATION
  Report Type: 
  Country: None (occurrence: None)
  Receive Date: 20041102
  Receipt Date: 20041014
  Transmission Date: 20050328
  Serious: Yes (Hospitalization)
  Sender: FDA-Public Use
  Company Number: 9085

PATIENT
  Age: 51 Year
  Sex: Female

DRUGS (3)
  1. LEUCOVORIN [Suspect]
     Indication: LARGE INTESTINE CARCINOMA
     Dosage: 75 MG, PO
     Route: 048
     Dates: start: 20040908, end: 20040929
  2. IRINOTECAN [Suspect]
     Indication: LARGE INTESTINE CARCINOMA
     Dosage: 400 MG, IV
     Route: 042
  3. UFT [Suspect]
     Indication: LARGE INTESTINE CARCINOMA
     Dosage: 500 MG, PO
     Route: 048
     Dates: start: 20040908, end: 20040929

REACTIONS (3)
  - ANOREXIA [None]
  - DIARRHOEA [None]
  - WHITE BLOOD CELL COUNT DECREASED [None]
